FAERS Safety Report 6272655-0 (Version None)
Quarter: 2009Q3

REPORT INFORMATION
  Report Type: 
  Country: None (occurrence: None)
  Receive Date: 20090717
  Receipt Date: 20090708
  Transmission Date: 20100115
  Serious: Yes (Hospitalization)
  Sender: FDA-Public Use
  Company Number: JP-B.I. PHARMACEUTICALS,INC./RIDGEFIELD-2009-DE-04762GD

PATIENT
  Age: 91 Year
  Sex: Male

DRUGS (1)
  1. MELOXICAM [Suspect]
     Indication: SPINAL COLUMN STENOSIS
     Dosage: 10 MG

REACTIONS (5)
  - ABDOMINAL PAIN [None]
  - GASTROINTESTINAL MUCOSAL NECROSIS [None]
  - INTESTINAL DIAPHRAGM DISEASE [None]
  - SMALL INTESTINAL OBSTRUCTION [None]
  - VOMITING [None]
